FAERS Safety Report 8947642 (Version 1)
Quarter: 2012Q4

REPORT INFORMATION
  Report Type: Report from Study
  Country: US (occurrence: US)
  Receive Date: 20121205
  Receipt Date: 20121205
  Transmission Date: 20130627
  Serious: Yes (Hospitalization)
  Sender: FDA-Public Use
  Company Number: US-ROCHE-1161729

PATIENT
  Age: 54 Year
  Sex: Male

DRUGS (1)
  1. PEG-INTERFERON ALFA 2A [Suspect]
     Indication: PRODUCT USED FOR UNKNOWN INDICATION
     Route: 065

REACTIONS (4)
  - Toxicity to various agents [Unknown]
  - Delirium [Unknown]
  - Aphasia [Unknown]
  - Abasia [Unknown]
